FAERS Safety Report 24264546 (Version 1)
Quarter: 2024Q3

REPORT INFORMATION
  Report Type: Spontaneous
  Country: CN (occurrence: CN)
  Receive Date: 20240829
  Receipt Date: 20240829
  Transmission Date: 20241017
  Serious: Yes (Other)
  Sender: JOHNSON AND JOHNSON
  Company Number: CN-JNJFOC-20240860003

PATIENT
  Age: 67 Year
  Sex: Female
  Weight: 43 kg

DRUGS (2)
  1. CHILDRENS MOTRIN [Suspect]
     Active Substance: IBUPROFEN
     Indication: Pyrexia
     Route: 048
     Dates: start: 20240805, end: 20240805
  2. CHILDRENS MOTRIN [Suspect]
     Active Substance: IBUPROFEN
     Indication: Antipyresis

REACTIONS (7)
  - Delirium [Unknown]
  - Altered state of consciousness [Unknown]
  - Shock [Unknown]
  - Product use issue [Unknown]
  - Body temperature increased [Unknown]
  - Somnolence [Unknown]
  - Vomiting [Unknown]

NARRATIVE: CASE EVENT DATE: 20240805
